FAERS Safety Report 4554762-3 (Version None)
Quarter: 2005Q1

REPORT INFORMATION
  Report Type: 
  Country: None (occurrence: None)
  Receive Date: 20041227
  Receipt Date: 20040914
  Transmission Date: 20050727
  Serious: No
  Sender: FDA-Public Use
  Company Number: 2004-0007490

PATIENT
  Sex: Male

DRUGS (4)
  1. VIREAD [Suspect]
  2. INVIRASE [Concomitant]
  3. NORVIR [Concomitant]
  4. EPIVIR [Concomitant]

REACTIONS (1)
  - HYPOKALAEMIA [None]
